FAERS Safety Report 4941506-6 (Version None)
Quarter: 2006Q1

REPORT INFORMATION
  Report Type: 
  Country: None (occurrence: None)
  Receive Date: 20060310
  Receipt Date: 20060310
  Transmission Date: 20060701
  Serious: Yes (Death, Hospitalization)
  Sender: FDA-Public Use
  Company Number: None

PATIENT
  Sex: Female
  Weight: 107.0489 kg

DRUGS (2)
  1. LOVENOX [Suspect]
     Indication: PULMONARY OEDEMA
     Dosage: 120MG  EVERY 12HOURS  SQ;  RESTARTED 40MG Q12HOURS
     Route: 058
     Dates: start: 20060103, end: 20060113
  2. LOVENOX [Suspect]
     Indication: PULMONARY OEDEMA
     Dosage: 120MG  EVERY 12HOURS  SQ;  RESTARTED 40MG Q12HOURS
     Route: 058
     Dates: start: 20060123

REACTIONS (15)
  - ABDOMINAL PAIN LOWER [None]
  - BLADDER DISORDER [None]
  - CARDIAC ARREST [None]
  - CARDIAC FAILURE CONGESTIVE [None]
  - CHRONIC OBSTRUCTIVE PULMONARY DISEASE [None]
  - DIABETES MELLITUS [None]
  - HAEMATOMA [None]
  - ILEUS [None]
  - PERIPHERAL VASCULAR DISORDER [None]
  - PULMONARY EMBOLISM [None]
  - PULMONARY OEDEMA [None]
  - RECTAL HAEMORRHAGE [None]
  - RENAL FAILURE ACUTE [None]
  - RESPIRATORY FAILURE [None]
  - URINARY TRACT INFECTION [None]
